FAERS Safety Report 8617222-6 (Version None)
Quarter: 2012Q3

REPORT INFORMATION
  Report Type: 
  Country: None (occurrence: None)
  Receive Date: 20120823
  Receipt Date: 20120815
  Transmission Date: 20120928
  Serious: No
  Sender: FDA-Public Use
  Company Number: US-ASTRAZENECA-2012SE57867

PATIENT
  Age: 71 Year
  Sex: Male

DRUGS (2)
  1. NEXIUM [Suspect]
     Route: 048
  2. CALCIUM CARBONATE [Concomitant]

REACTIONS (2)
  - GASTRIC DISORDER [None]
  - DRUG DOSE OMISSION [None]
